FAERS Safety Report 14864511 (Version 3)
Quarter: 2018Q3

REPORT INFORMATION
  Report Type: Report from Study
  Country: US (occurrence: US)
  Receive Date: 20180508
  Receipt Date: 20180918
  Transmission Date: 20181010
  Serious: Yes (Hospitalization)
  Sender: FDA-Public Use
  Company Number: US-ACTELION-A-US2018-169916

PATIENT
  Age: 73 Year
  Sex: Female
  Weight: 97.52 kg

DRUGS (3)
  1. OPSUMIT [Suspect]
     Active Substance: MACITENTAN
     Indication: PULMONARY ARTERIAL HYPERTENSION
     Dosage: 10 MG, QD
     Route: 048
  2. ADEMPAS [Concomitant]
     Active Substance: RIOCIGUAT
  3. ELIQUIS [Concomitant]
     Active Substance: APIXABAN

REACTIONS (8)
  - Hypotension [Unknown]
  - Sneezing [Unknown]
  - Weight decreased [Unknown]
  - Spinal fracture [Unknown]
  - Nasopharyngitis [Unknown]
  - Influenza like illness [Unknown]
  - Spinal operation [Unknown]
  - Fistula [Unknown]
